FAERS Safety Report 12845540 (Version 3)
Quarter: 2019Q4

REPORT INFORMATION
  Report Type: Spontaneous
  Country: US (occurrence: US)
  Receive Date: 20161013
  Receipt Date: 20191112
  Transmission Date: 20200122
  Serious: No
  Sender: FDA-Public Use
  Company Number: US-JAZZ-2016-US-013817

PATIENT
  Sex: Male

DRUGS (34)
  1. CELEBREX [Concomitant]
     Active Substance: CELECOXIB
  2. DHEA [Concomitant]
     Active Substance: PRASTERONE
  3. FISH OIL [Concomitant]
     Active Substance: FISH OIL
  4. MORPHINE SULF CR [Concomitant]
  5. ZANAFLEX [Concomitant]
     Active Substance: TIZANIDINE HYDROCHLORIDE
  6. XYREM [Suspect]
     Active Substance: SODIUM OXYBATE
     Dosage: 5 G, FIRST DOSE
     Route: 048
     Dates: start: 201407
  7. TOPIRAMATE. [Concomitant]
     Active Substance: TOPIRAMATE
  8. FENTANYL. [Concomitant]
     Active Substance: FENTANYL
  9. NORTRIPTYLINE HCL [Concomitant]
     Active Substance: NORTRIPTYLINE HYDROCHLORIDE
  10. PROPRANOLOL ER [Concomitant]
     Active Substance: PROPRANOLOL HYDROCHLORIDE
  11. XYREM [Suspect]
     Active Substance: SODIUM OXYBATE
     Dosage: DOSE ADJUSTMENTS
     Route: 048
     Dates: start: 201012, end: 201407
  12. BACLOFEN. [Concomitant]
     Active Substance: BACLOFEN
  13. CYMBALTA [Concomitant]
     Active Substance: DULOXETINE HYDROCHLORIDE
  14. XYREM [Suspect]
     Active Substance: SODIUM OXYBATE
     Indication: PAIN
     Dosage: 3 G, BID
     Route: 048
     Dates: start: 201010, end: 2010
  15. CLINDAMYCIN HCL [Concomitant]
     Active Substance: CLINDAMYCIN HYDROCHLORIDE
  16. SENNOSIDE [Concomitant]
     Active Substance: SENNOSIDES
  17. TESTOSTERONE. [Concomitant]
     Active Substance: TESTOSTERONE
  18. OMEPRAZOLE DR [Concomitant]
     Active Substance: OMEPRAZOLE
  19. TRILEPTAL [Concomitant]
     Active Substance: OXCARBAZEPINE
  20. ZINC. [Concomitant]
     Active Substance: ZINC
  21. MS CONTIN [Concomitant]
     Active Substance: MORPHINE SULFATE
  22. OXYCODONE HYDROCHLORIDE. [Concomitant]
     Active Substance: OXYCODONE HYDROCHLORIDE
  23. MELATONIN [Concomitant]
     Active Substance: MELATONIN
  24. VALIUM [Concomitant]
     Active Substance: DIAZEPAM
  25. DIAZEPAM. [Concomitant]
     Active Substance: DIAZEPAM
  26. XYREM [Suspect]
     Active Substance: SODIUM OXYBATE
     Dosage: 4 G, SECOND DOSE
     Route: 048
     Dates: start: 201407
  27. AMBIEN [Concomitant]
     Active Substance: ZOLPIDEM TARTRATE
  28. VITAMIN D [Concomitant]
     Active Substance: VITAMIN D NOS
  29. MIRTAZAPINE. [Concomitant]
     Active Substance: MIRTAZAPINE
  30. N-ACETYL-L-CYSTEINE [Concomitant]
     Active Substance: ACETYLCYSTEINE
  31. VIIBRYD [Concomitant]
     Active Substance: VILAZODONE HYDROCHLORIDE
  32. HYDROMORPHONE [Concomitant]
     Active Substance: HYDROMORPHONE
  33. DOCUSATE CALCIUM. [Concomitant]
     Active Substance: DOCUSATE CALCIUM
  34. IBUPROFEN IB [Concomitant]
     Active Substance: IBUPROFEN

REACTIONS (2)
  - Memory impairment [Not Recovered/Not Resolved]
  - Paronychia [Unknown]
